FAERS Safety Report 16126505 (Version 1)
Quarter: 2019Q1

REPORT INFORMATION
  Report Type: Spontaneous
  Country: FR (occurrence: FR)
  Receive Date: 20190328
  Receipt Date: 20190328
  Transmission Date: 20190418
  Serious: Yes (Hospitalization)
  Sender: FDA-Public Use
  Company Number: FR-TEVA-2019-FR-1030229

PATIENT
  Age: 31 Year
  Sex: Male
  Weight: 68 kg

DRUGS (3)
  1. PARALYOC [Concomitant]
     Active Substance: ACETAMINOPHEN
  2. AMOXICILLINE ANHYDRE [Suspect]
     Active Substance: AMOXICILLIN
     Indication: TONSILLITIS
     Route: 048
     Dates: end: 20190201
  3. PROFENID [Suspect]
     Active Substance: KETOPROFEN
     Indication: OROPHARYNGEAL PAIN
     Route: 030
     Dates: start: 20190201, end: 20190201

REACTIONS (1)
  - Cellulitis [Recovered/Resolved]

NARRATIVE: CASE EVENT DATE: 20190201
